FAERS Safety Report 24207644 (Version 1)
Quarter: 2024Q3

REPORT INFORMATION
  Report Type: Report from Study
  Country: CA (occurrence: CA)
  Receive Date: 20240814
  Receipt Date: 20240814
  Transmission Date: 20241016
  Serious: Yes (Other)
  Sender: ABBVIE
  Company Number: CA-ABBVIE-5875958

PATIENT
  Sex: Female

DRUGS (1)
  1. HUMIRA [Suspect]
     Active Substance: ADALIMUMAB
     Indication: Crohn^s disease
     Route: 058
     Dates: start: 20110507

REACTIONS (5)
  - Abdominal mass [Unknown]
  - Umbilical hernia [Unknown]
  - Abdominal adhesions [Unknown]
  - Abdominal adhesions [Unknown]
  - Injection site pain [Unknown]
